FAERS Safety Report 6707640-5 (Version None)
Quarter: 2010Q2

REPORT INFORMATION
  Report Type: 
  Country: None (occurrence: None)
  Receive Date: 20100503
  Receipt Date: 20091002
  Transmission Date: 20101027
  Serious: No
  Sender: FDA-Public Use
  Company Number: US-ASTRAZENECA-2009SE17580

PATIENT
  Age: 42 Year
  Sex: Female
  Weight: 78.9 kg

DRUGS (2)
  1. NEXIUM [Suspect]
     Indication: EROSIVE OESOPHAGITIS
     Route: 048
     Dates: start: 20090930
  2. LEXAPRO [Concomitant]
     Indication: ANXIETY

REACTIONS (1)
  - THROAT IRRITATION [None]
